FAERS Safety Report 8935099 (Version 1)
Quarter: 2012Q4

REPORT INFORMATION
  Report Type: 
  Country: US (occurrence: US)
  Receive Date: 20121129
  Receipt Date: 20121129
  Transmission Date: 20130627
  Serious: No
  Sender: FDA-Public Use
  Company Number: US-PFIZER INC-2012297613

PATIENT
  Sex: Female

DRUGS (3)
  1. LYRICA [Suspect]
     Dosage: UNK
  2. GABAPENTIN [Suspect]
     Dosage: UNK
  3. TOPAMAX [Suspect]
     Dosage: UNK

REACTIONS (2)
  - Visual impairment [Unknown]
  - Memory impairment [Unknown]
